FAERS Safety Report 4635649-4 (Version None)
Quarter: 2005Q2

REPORT INFORMATION
  Report Type: 
  Country: None (occurrence: None)
  Receive Date: 20050413
  Receipt Date: 20050401
  Transmission Date: 20051028
  Serious: Yes (Hospitalization)
  Sender: FDA-Public Use
  Company Number: 2005038034

PATIENT
  Age: 60 Year
  Sex: Male
  Weight: 108 kg

DRUGS (8)
  1. CARDULAR PP                 (DOXAZOSIN) [Suspect]
     Indication: HYPERTENSION
     Dosage: 4 MG (4 MG, DAILY), ORAL
     Route: 048
     Dates: start: 20050221, end: 20050224
  2. NITRENDIPINE (NITRENDIPINE) [Suspect]
     Indication: HYPERTENSION
     Dosage: 40 MG (DAILY), ORAL
     Route: 048
  3. OLMESARTAN MEDOXOMIL [Concomitant]
  4. BISOPROLOL FUMARATE [Concomitant]
  5. ASPIRIN [Concomitant]
  6. GLIMEPIRIDE [Concomitant]
  7. SIMVASTATIN [Concomitant]
  8. PIOGLITAZONE HCL [Concomitant]

REACTIONS (7)
  - BLOOD GLUCOSE INCREASED [None]
  - CARDIOVASCULAR DISORDER [None]
  - ERYSIPELAS [None]
  - FEBRILE INFECTION [None]
  - OEDEMA PERIPHERAL [None]
  - PURULENCE [None]
  - SKIN ULCER [None]
